FAERS Safety Report 8760233 (Version 1)
Quarter: 2012Q4

REPORT INFORMATION
  Report Type: Spontaneous
  Country: US (occurrence: None)
  Receive Date: 20120828
  Receipt Date: 20120828
  Transmission Date: 20130627
  Serious: Yes (Disabling)
  Sender: FDA-Public Use
  Company Number: None

PATIENT
  Sex: Female
  Weight: 77.11 kg

DRUGS (1)
  1. GEODON [Suspect]
     Dosage: Saw all this still now, from a few years ago!

Psychiatric medication

REACTIONS (3)
  - Weight increased [None]
  - Local swelling [None]
  - Deformity [None]
